FAERS Safety Report 5917943-X (Version None)
Quarter: 2008Q4

REPORT INFORMATION
  Report Type: 
  Country: None (occurrence: None)
  Receive Date: 20081014
  Receipt Date: 20081008
  Transmission Date: 20090506
  Serious: Yes (Other)
  Sender: FDA-Public Use
  Company Number: RU-PFIZER INC-2008084297

PATIENT
  Age: 60 Year
  Sex: Male

DRUGS (2)
  1. XALATAN [Suspect]
     Indication: OPEN ANGLE GLAUCOMA
     Dates: start: 20080926, end: 20081008
  2. TIMOLOL [Concomitant]
     Dates: start: 20080101

REACTIONS (1)
  - INTRAOCULAR PRESSURE INCREASED [None]
